FAERS Safety Report 24278763 (Version 1)
Quarter: 2024Q3

REPORT INFORMATION
  Report Type: Spontaneous
  Country: US (occurrence: US)
  Receive Date: 20240903
  Receipt Date: 20240903
  Transmission Date: 20241017
  Serious: No
  Sender: MYLAN
  Company Number: US-MYLANLABS-2024M1078421

PATIENT
  Sex: Female

DRUGS (2)
  1. TYRVAYA [Suspect]
     Active Substance: VARENICLINE TARTRATE
     Indication: Dry eye
     Dosage: 0.03 MILLIGRAM
     Route: 045
     Dates: start: 20240821
  2. RESTASIS [Concomitant]
     Active Substance: CYCLOSPORINE
     Dosage: UNK
     Route: 065

REACTIONS (1)
  - Sneezing [Unknown]
